FAERS Safety Report 12062113 (Version 1)
Quarter: 2016Q1

REPORT INFORMATION
  Report Type: Spontaneous
  Country: US (occurrence: US)
  Receive Date: 20160210
  Receipt Date: 20160210
  Transmission Date: 20160526
  Serious: No
  Sender: FDA-Public Use
  Company Number: US-ALLERGAN-1300328US

PATIENT
  Age: 55 Year
  Sex: Female

DRUGS (1)
  1. BOTOX COSMETIC [Suspect]
     Active Substance: ONABOTULINUMTOXINA
     Indication: EYELID PTOSIS
     Dosage: UNK, SINGLE
     Route: 030
     Dates: start: 20121123, end: 20121123

REACTIONS (2)
  - Drug ineffective [Unknown]
  - Off label use [Unknown]
